FAERS Safety Report 24567194 (Version 1)
Quarter: 2024Q4

REPORT INFORMATION
  Report Type: Spontaneous
  Country: FR (occurrence: FR)
  Receive Date: 20241030
  Receipt Date: 20241030
  Transmission Date: 20250114
  Serious: Yes (Life-Threatening, Other)
  Sender: ALEXION PHARMACEUTICALS
  Company Number: None

PATIENT
  Age: 65 Year
  Weight: 62.5 kg

DRUGS (28)
  1. ESOMEPRAZOLE [Suspect]
     Active Substance: ESOMEPRAZOLE
     Indication: Poisoning deliberate
     Dosage: 160 MILLIGRAM, ONCE
  2. ESOMEPRAZOLE [Suspect]
     Active Substance: ESOMEPRAZOLE
     Dosage: 160 MILLIGRAM, ONCE
  3. ESOMEPRAZOLE [Suspect]
     Active Substance: ESOMEPRAZOLE
     Dosage: 160 MILLIGRAM, ONCE
  4. ESOMEPRAZOLE [Suspect]
     Active Substance: ESOMEPRAZOLE
     Dosage: 160 MILLIGRAM, ONCE
  5. NICARDIPINE HYDROCHLORIDE [Suspect]
     Active Substance: NICARDIPINE HYDROCHLORIDE
     Indication: Poisoning deliberate
     Dosage: 12 DOSAGE FORM, ONCE
  6. NICARDIPINE HYDROCHLORIDE [Suspect]
     Active Substance: NICARDIPINE HYDROCHLORIDE
     Dosage: 12 DOSAGE FORM, ONCE
  7. NICARDIPINE HYDROCHLORIDE [Suspect]
     Active Substance: NICARDIPINE HYDROCHLORIDE
     Dosage: 12 DOSAGE FORM, ONCE
  8. NICARDIPINE HYDROCHLORIDE [Suspect]
     Active Substance: NICARDIPINE HYDROCHLORIDE
     Dosage: 12 DOSAGE FORM, ONCE
  9. RILMENIDINE [Suspect]
     Active Substance: RILMENIDINE
     Indication: Poisoning deliberate
     Dosage: 8 MILLIGRAM, ONCE
  10. RILMENIDINE [Suspect]
     Active Substance: RILMENIDINE
     Dosage: 8 MILLIGRAM, ONCE
  11. RILMENIDINE [Suspect]
     Active Substance: RILMENIDINE
     Dosage: 8 MILLIGRAM, ONCE
  12. RILMENIDINE [Suspect]
     Active Substance: RILMENIDINE
     Dosage: 8 MILLIGRAM, ONCE
  13. PERINDOPRIL [Suspect]
     Active Substance: PERINDOPRIL
     Indication: Poisoning deliberate
     Dosage: 32 MILLIGRAM, ONCE
  14. PERINDOPRIL [Suspect]
     Active Substance: PERINDOPRIL
     Dosage: 32 MILLIGRAM, ONCE
  15. PERINDOPRIL [Suspect]
     Active Substance: PERINDOPRIL
     Dosage: 32 MILLIGRAM, ONCE
  16. PERINDOPRIL [Suspect]
     Active Substance: PERINDOPRIL
     Dosage: 32 MILLIGRAM, ONCE
  17. ATORVASTATIN [Suspect]
     Active Substance: ATORVASTATIN
     Indication: Poisoning deliberate
     Dosage: 160 MILLIGRAM, ONCE
  18. ATORVASTATIN [Suspect]
     Active Substance: ATORVASTATIN
     Dosage: 160 MILLIGRAM, ONCE
  19. ATORVASTATIN [Suspect]
     Active Substance: ATORVASTATIN
     Dosage: 160 MILLIGRAM, ONCE
  20. ATORVASTATIN [Suspect]
     Active Substance: ATORVASTATIN
     Dosage: 160 MILLIGRAM, ONCE
  21. ASPIRIN [Suspect]
     Active Substance: ASPIRIN
     Indication: Poisoning deliberate
     Dosage: 800 MILLIGRAM, ONCE
  22. ASPIRIN [Suspect]
     Active Substance: ASPIRIN
     Dosage: 800 MILLIGRAM, ONCE
  23. ASPIRIN [Suspect]
     Active Substance: ASPIRIN
     Dosage: 800 MILLIGRAM, ONCE
  24. ASPIRIN [Suspect]
     Active Substance: ASPIRIN
     Dosage: 800 MILLIGRAM, ONCE
  25. LEVETIRACETAM [Suspect]
     Active Substance: LEVETIRACETAM
     Indication: Poisoning deliberate
     Dosage: 10 GRAM, ONCE
  26. LEVETIRACETAM [Suspect]
     Active Substance: LEVETIRACETAM
     Dosage: 10 GRAM, ONCE
  27. LEVETIRACETAM [Suspect]
     Active Substance: LEVETIRACETAM
     Dosage: 10 GRAM, ONCE
  28. LEVETIRACETAM [Suspect]
     Active Substance: LEVETIRACETAM
     Dosage: 10 GRAM, ONCE

REACTIONS (3)
  - Circulatory collapse [Recovered/Resolved]
  - Intentional overdose [Recovered/Resolved]
  - Poisoning deliberate [Unknown]
